FAERS Safety Report 7648310-9 (Version None)
Quarter: 2011Q3

REPORT INFORMATION
  Report Type: 
  Country: None (occurrence: None)
  Receive Date: 20110801
  Receipt Date: 20110727
  Transmission Date: 20111222
  Serious: Yes (Life-Threatening, Hospitalization, Other)
  Sender: FDA-Public Use
  Company Number: FR-PFIZER INC-2011161590

PATIENT
  Age: 85 Year
  Sex: Female

DRUGS (4)
  1. LYRICA [Suspect]
     Indication: HERPES ZOSTER
     Dosage: 225 MG PER DAY
     Route: 048
     Dates: start: 20110615, end: 20110621
  2. CYCLOPHOSPHAMIDE [Concomitant]
     Indication: CHEMOTHERAPY
     Dosage: 6 COURSES
     Route: 042
     Dates: start: 20110201
  3. ZOVIRAX [Suspect]
     Indication: HERPES ZOSTER
     Dosage: 2000 MG DAILY
     Route: 048
     Dates: start: 20110615, end: 20110621
  4. BACTRIM DS [Suspect]
     Indication: PROPHYLAXIS
     Dosage: 800 MG, 1X/DAY
     Route: 048
     Dates: start: 20110201, end: 20110621

REACTIONS (4)
  - AGRANULOCYTOSIS [None]
  - TREMOR [None]
  - URINARY TRACT INFECTION BACTERIAL [None]
  - DYSPHEMIA [None]
